FAERS Safety Report 17436936 (Version 2)
Quarter: 2020Q2

REPORT INFORMATION
  Report Type: Spontaneous
  Country: US (occurrence: US)
  Receive Date: 20200219
  Receipt Date: 20200413
  Transmission Date: 20200713
  Serious: No
  Sender: FDA-Public Use
  Company Number: US-ACTELION-A-NJ2020-201200

PATIENT
  Sex: Female

DRUGS (1)
  1. VELETRI [Suspect]
     Active Substance: EPOPROSTENOL
     Indication: PULMONARY HYPERTENSION
     Dosage: UNK NG/KG, PER MIN
     Route: 042

REACTIONS (3)
  - Feeling abnormal [Unknown]
  - Systemic lupus erythematosus [Unknown]
  - Dyspnoea exertional [Unknown]
